FAERS Safety Report 7091136-8 (Version None)
Quarter: 2010Q4

REPORT INFORMATION
  Report Type: 
  Country: None (occurrence: None)
  Receive Date: 20101105
  Receipt Date: 20101105
  Transmission Date: 20110411
  Serious: No
  Sender: FDA-Public Use
  Company Number: None

PATIENT
  Sex: Male
  Weight: 90.7194 kg

DRUGS (1)
  1. ASPIRIN [Suspect]
     Indication: CARDIOVASCULAR EVENT PROPHYLAXIS
     Dosage: 81 MG 1 TABLET DAILY PO
     Route: 048
     Dates: start: 20101020, end: 20101028

REACTIONS (2)
  - PRODUCT FORMULATION ISSUE [None]
  - TABLET ISSUE [None]
